FAERS Safety Report 15885638 (Version 1)
Quarter: 2019Q1

REPORT INFORMATION
  Report Type: Spontaneous
  Country: US (occurrence: US)
  Receive Date: 20190129
  Receipt Date: 20190129
  Transmission Date: 20190417
  Serious: No
  Sender: FDA-Public Use
  Company Number: US-BIOMARINAP-US-2019-121619

PATIENT
  Sex: Female

DRUGS (13)
  1. OXYGEN. [Concomitant]
     Active Substance: OXYGEN
     Indication: PRODUCT USED FOR UNKNOWN INDICATION
  2. ACETAMINOPHEN. [Concomitant]
     Active Substance: ACETAMINOPHEN
     Indication: PRODUCT USED FOR UNKNOWN INDICATION
  3. RANITIDINE. [Concomitant]
     Active Substance: RANITIDINE
     Indication: PRODUCT USED FOR UNKNOWN INDICATION
  4. EPIPEN [Concomitant]
     Active Substance: EPINEPHRINE
     Indication: PRODUCT USED FOR UNKNOWN INDICATION
  5. VIMIZIM [Suspect]
     Active Substance: ELOSULFASE ALFA
     Indication: MUCOPOLYSACCHARIDOSIS IV
     Dosage: 70 MILLIGRAM, QW
     Route: 042
     Dates: start: 20151007
  6. SODIUM CHLORIDE. [Concomitant]
     Active Substance: SODIUM CHLORIDE
     Indication: PRODUCT USED FOR UNKNOWN INDICATION
  7. EPINEPHRINE. [Concomitant]
     Active Substance: EPINEPHRINE
     Indication: PRODUCT USED FOR UNKNOWN INDICATION
  8. DIPHENHYDRAMINE. [Concomitant]
     Active Substance: DIPHENHYDRAMINE
     Indication: PRODUCT USED FOR UNKNOWN INDICATION
  9. LIDOCAINE/PRILOCAINE [Concomitant]
     Active Substance: LIDOCAINE\PRILOCAINE
     Indication: PRODUCT USED FOR UNKNOWN INDICATION
  10. NORMAL SALINE [Concomitant]
     Active Substance: SODIUM CHLORIDE
     Indication: PRODUCT USED FOR UNKNOWN INDICATION
  11. EYE DROPS [Concomitant]
     Active Substance: UNSPECIFIED INGREDIENT
     Indication: PRODUCT USED FOR UNKNOWN INDICATION
  12. SOOTHE                             /00256502/ [Concomitant]
     Active Substance: TETRAHYDROZOLINE HYDROCHLORIDE
     Indication: PRODUCT USED FOR UNKNOWN INDICATION
  13. MUCINEX [Concomitant]
     Active Substance: GUAIFENESIN
     Indication: PRODUCT USED FOR UNKNOWN INDICATION

REACTIONS (1)
  - Urinary tract infection [Unknown]
